FAERS Safety Report 9942295 (Version 1)
Quarter: 2014Q1

REPORT INFORMATION
  Report Type: Spontaneous
  Country: GB (occurrence: GB)
  Receive Date: 20140303
  Receipt Date: 20140303
  Transmission Date: 20141002
  Serious: Yes (Other)
  Sender: FDA-Public Use
  Company Number: PHFR2014GB001761

PATIENT
  Sex: Female

DRUGS (2)
  1. EVEROLIMUS [Suspect]
     Indication: BREAST CANCER
     Dosage: 10 MG, UNK
     Route: 048
  2. EXEMESTANE [Suspect]
     Indication: BREAST CANCER

REACTIONS (10)
  - Paraesthesia oral [Unknown]
  - Hypoaesthesia oral [Unknown]
  - Ulcer [Unknown]
  - Malignant neoplasm progression [Unknown]
  - Onychoclasis [Unknown]
  - Mouth ulceration [Recovering/Resolving]
  - Glossodynia [Unknown]
  - Acne [Recovered/Resolved]
  - Rash [Unknown]
  - Weight decreased [Unknown]
